FAERS Safety Report 24094714 (Version 2)
Quarter: 2024Q3

REPORT INFORMATION
  Report Type: Spontaneous
  Country: US (occurrence: US)
  Receive Date: 20240716
  Receipt Date: 20240805
  Transmission Date: 20241016
  Serious: Yes (Hospitalization)
  Sender: TEVA
  Company Number: US-TEVA-VS-3218943

PATIENT
  Age: 32 Year
  Sex: Female

DRUGS (1)
  1. FENTANYL [Suspect]
     Active Substance: FENTANYL\FENTANYL CITRATE
     Indication: Drug abuse
     Route: 065

REACTIONS (6)
  - Pneumonia [Recovering/Resolving]
  - Septic pulmonary embolism [Unknown]
  - Overdose [Unknown]
  - Pneumonia escherichia [Recovering/Resolving]
  - Endocarditis [Unknown]
  - Drug abuse [Unknown]
